FAERS Safety Report 19745053 (Version 1)
Quarter: 2021Q3

REPORT INFORMATION
  Report Type: Spontaneous
  Country: US (occurrence: US)
  Receive Date: 20210824
  Receipt Date: 20210824
  Transmission Date: 20211014
  Serious: No
  Sender: FDA-Public Use
  Company Number: None

PATIENT
  Age: 73 Year
  Sex: Male
  Weight: 85.05 kg

DRUGS (6)
  1. FIRMAGON [Suspect]
     Active Substance: DEGARELIX ACETATE
     Dosage: ?          OTHER FREQUENCY:ONE TIME;?
     Route: 058
     Dates: start: 20210817, end: 20210817
  2. ATORVASTATIN 20MG [Concomitant]
     Active Substance: ATORVASTATIN
  3. CIALIS [Concomitant]
     Active Substance: TADALAFIL
  4. LORSATAN 25MG [Concomitant]
  5. AMLODIPINE [Concomitant]
     Active Substance: AMLODIPINE BESYLATE
  6. TAMSULOSIN 0.4MG [Concomitant]
     Active Substance: TAMSULOSIN

REACTIONS (4)
  - Hot flush [None]
  - Injection site warmth [None]
  - Injection site induration [None]
  - Injection site irritation [None]

NARRATIVE: CASE EVENT DATE: 20210817
